FAERS Safety Report 6046374-X (Version None)
Quarter: 2009Q1

REPORT INFORMATION
  Report Type: 
  Country: None (occurrence: None)
  Receive Date: 20090122
  Receipt Date: 20090116
  Transmission Date: 20090719
  Serious: Yes (Hospitalization)
  Sender: FDA-Public Use
  Company Number: US-BIOGENIDEC-2008BI019373

PATIENT
  Age: 49 Year
  Sex: Female

DRUGS (3)
  1. AVONEX [Suspect]
     Indication: MULTIPLE SCLEROSIS
     Route: 030
  2. AVONEX [Suspect]
     Route: 030
     Dates: start: 20000601, end: 20040601
  3. AVONEX [Suspect]
     Route: 030
     Dates: start: 20040601, end: 20080801

REACTIONS (3)
  - FALL [None]
  - FOOT FRACTURE [None]
  - PAIN [None]
